FAERS Safety Report 9162899 (Version 2)
Quarter: 2013Q2

REPORT INFORMATION
  Report Type: Report from Study
  Country: DK (occurrence: DK)
  Receive Date: 20130314
  Receipt Date: 20130419
  Transmission Date: 20140414
  Serious: Yes (Hospitalization)
  Sender: FDA-Public Use
  Company Number: DK-ASTRAZENECA-2013SE15038

PATIENT
  Age: 14297 Day
  Sex: Male

DRUGS (15)
  1. AZD6140 [Suspect]
     Indication: ACUTE MYOCARDIAL INFARCTION
     Dosage: IN-CATH LOADING DOSE
     Route: 048
     Dates: start: 20130124
  2. AZD6140 [Suspect]
     Indication: ACUTE MYOCARDIAL INFARCTION
     Route: 048
     Dates: start: 20130124, end: 20130225
  3. AZD6140 [Suspect]
     Indication: ACUTE MYOCARDIAL INFARCTION
     Route: 048
  4. PLACEBO [Suspect]
     Indication: ACUTE MYOCARDIAL INFARCTION
     Dosage: PRE-CATH LOADING DOSE
     Route: 048
     Dates: start: 20130124
  5. ASPIRIN [Suspect]
     Indication: ACUTE MYOCARDIAL INFARCTION
     Route: 048
     Dates: start: 20130124, end: 20130124
  6. ASPIRIN [Suspect]
     Indication: ACUTE MYOCARDIAL INFARCTION
     Route: 048
     Dates: start: 20130125, end: 20130214
  7. HEPARIN [Concomitant]
     Route: 042
     Dates: start: 20130124, end: 20130124
  8. BIVALIRUDIN [Concomitant]
     Route: 042
     Dates: start: 20130124, end: 20130124
  9. PANTOPRAZOL [Concomitant]
     Route: 048
     Dates: start: 20130124, end: 20130124
  10. PANTOPRAZOL [Concomitant]
     Route: 042
     Dates: start: 20130124, end: 20130124
  11. ATORVASTATIN [Concomitant]
     Route: 048
     Dates: start: 20130124
  12. METOPROLOL [Concomitant]
     Route: 048
     Dates: start: 20130124
  13. FENTANYL [Concomitant]
     Route: 042
     Dates: start: 20130124, end: 20130124
  14. NITROGLYCERING [Concomitant]
  15. ATROPIM [Concomitant]
     Route: 042
     Dates: start: 20130124, end: 20130124

REACTIONS (1)
  - Colitis [Not Recovered/Not Resolved]
